FAERS Safety Report 16410883 (Version 1)
Quarter: 2019Q2

REPORT INFORMATION
  Report Type: Spontaneous
  Country: PH (occurrence: PH)
  Receive Date: 20190610
  Receipt Date: 20190610
  Transmission Date: 20190711
  Serious: Yes (Other)
  Sender: FDA-Public Use
  Company Number: PH-JNJFOC-20190609255

PATIENT

DRUGS (1)
  1. CAELYX [Suspect]
     Active Substance: DOXORUBICIN HYDROCHLORIDE
     Indication: MESOTHELIOMA
     Route: 042

REACTIONS (3)
  - Off label use [Unknown]
  - Bradycardia [Unknown]
  - Product use in unapproved indication [Unknown]
